FAERS Safety Report 5418205-X (Version None)
Quarter: 2007Q3

REPORT INFORMATION
  Report Type: 
  Country: None (occurrence: None)
  Receive Date: 20070817
  Receipt Date: 20070807
  Transmission Date: 20080115
  Serious: Yes (Other)
  Sender: FDA-Public Use
  Company Number: PHHO2006BE20949

PATIENT
  Age: 82 Year
  Sex: Female
  Weight: 61 kg

DRUGS (5)
  1. ZOMETA [Suspect]
     Indication: METASTASES TO BONE
     Dosage: 3MG EVERY 4WEEKS
     Route: 042
     Dates: start: 20040429, end: 20061010
  2. ATARAX [Concomitant]
     Indication: ANXIETY
  3. ASAFLOW [Concomitant]
     Indication: ANALGESIA
  4. NOLVADEX [Concomitant]
     Indication: HORMONE THERAPY
  5. CORUNO [Concomitant]
     Indication: CARDIAC DISORDER

REACTIONS (3)
  - OSTEOMYELITIS [None]
  - OSTEONECROSIS [None]
  - PAIN [None]
